FAERS Safety Report 4771237-7 (Version None)
Quarter: 2005Q3

REPORT INFORMATION
  Report Type: 
  Country: None (occurrence: None)
  Receive Date: 20050912
  Receipt Date: 20050630
  Transmission Date: 20060218
  Serious: No
  Sender: FDA-Public Use
  Company Number: 2005-01409

PATIENT
  Age: 68 Year
  Sex: Female
  Weight: 61.2 kg

DRUGS (2)
  1. VELCADE [Suspect]
     Indication: MULTIPLE MYELOMA
     Dosage: 2/WEEK
     Dates: start: 20050301
  2. ANTIHYPERTENSIVES [Concomitant]

REACTIONS (3)
  - CRYING [None]
  - EMOTIONAL DISORDER [None]
  - PAIN IN EXTREMITY [None]
